FAERS Safety Report 10310024 (Version 1)
Quarter: 2014Q3

REPORT INFORMATION
  Report Type: Spontaneous
  Country: US (occurrence: None)
  Receive Date: 20140715
  Receipt Date: 20140715
  Transmission Date: 20150326
  Serious: Yes (Hospitalization)
  Sender: FDA-Public Use
  Company Number: None

PATIENT
  Age: 73 Year
  Sex: Female
  Weight: 63.5 kg

DRUGS (1)
  1. BENICAR HCT [Suspect]
     Active Substance: HYDROCHLOROTHIAZIDE\OLMESARTAN MEDOXOMIL
     Indication: HYPERTENSION
     Dosage: BY MOUTH; TAKEN OVER TIME
     Dates: start: 20131123, end: 20140516

REACTIONS (3)
  - Vomiting [None]
  - Influenza like illness [None]
  - Diarrhoea [None]

NARRATIVE: CASE EVENT DATE: 20131120
